FAERS Safety Report 13360737 (Version 1)
Quarter: 2017Q1

REPORT INFORMATION
  Report Type: Spontaneous
  Country: US (occurrence: US)
  Receive Date: 20170322
  Receipt Date: 20170322
  Transmission Date: 20170429
  Serious: Yes (Death)
  Sender: FDA-Public Use
  Company Number: US-VIFOR (INTERNATIONAL) INC.-VIT-2017-02897

PATIENT
  Sex: Female

DRUGS (17)
  1. NOVOLOG [Concomitant]
     Active Substance: INSULIN ASPART
  2. PARACETAMOL [Concomitant]
     Active Substance: ACETAMINOPHEN
  3. ERGOCALCIFEROL. [Concomitant]
     Active Substance: ERGOCALCIFEROL
  4. CALCIUM ACETATE. [Concomitant]
     Active Substance: CALCIUM ACETATE
  5. QUETIAPINE FUMARATE. [Concomitant]
     Active Substance: QUETIAPINE FUMARATE
  6. HYDROCODONE-ACETAMINOPHEN [Concomitant]
     Active Substance: ACETAMINOPHEN\HYDROCODONE
  7. LORAZEPAM. [Concomitant]
     Active Substance: LORAZEPAM
  8. VELTASSA [Suspect]
     Active Substance: PATIROMER
     Indication: HYPERKALAEMIA
     Route: 048
     Dates: start: 20161220
  9. FUROSEMIDE. [Concomitant]
     Active Substance: FUROSEMIDE
  10. RENAL [Concomitant]
  11. SODIUM BICARBONATE. [Concomitant]
     Active Substance: SODIUM BICARBONATE
  12. BISACODYL. [Concomitant]
     Active Substance: BISACODYL
  13. LEVEMIR [Concomitant]
     Active Substance: INSULIN DETEMIR
  14. ONDANSETRON HYDROCHLORIDE. [Concomitant]
     Active Substance: ONDANSETRON HYDROCHLORIDE
  15. ROZEREM [Concomitant]
     Active Substance: RAMELTEON
  16. DONEPEZIL HYDROCHLORIDE. [Concomitant]
     Active Substance: DONEPEZIL HYDROCHLORIDE
  17. ESCITALOPRAM OXALATE. [Concomitant]
     Active Substance: ESCITALOPRAM OXALATE

REACTIONS (1)
  - Death [Fatal]
